FAERS Safety Report 5926132-4 (Version None)
Quarter: 2008Q4

REPORT INFORMATION
  Report Type: 
  Country: None (occurrence: None)
  Receive Date: 20081016
  Receipt Date: 20081013
  Transmission Date: 20090506
  Serious: Yes (Death, Hospitalization)
  Sender: FDA-Public Use
  Company Number: 2008-185254-NL

PATIENT
  Age: 44 Year
  Sex: Male

DRUGS (7)
  1. MIRTAZAPINE [Suspect]
     Indication: DEPRESSION
     Dosage: 30 MG ORAL
     Route: 048
     Dates: start: 20070927, end: 20080720
  2. ALPRAZOLAM [Concomitant]
  3. PEGASYS [Concomitant]
  4. RIBAVIRIN [Concomitant]
  5. ETHAMBUTOL DIHYDROCHLORIDE [Concomitant]
  6. RIFATER [Concomitant]
  7. METHADONE HCL [Concomitant]

REACTIONS (4)
  - ACIDOSIS [None]
  - MALAISE [None]
  - NAUSEA [None]
  - VOMITING [None]
